FAERS Safety Report 22659961 (Version 5)
Quarter: 2024Q2

REPORT INFORMATION
  Report Type: Spontaneous
  Country: US (occurrence: US)
  Receive Date: 20230630
  Receipt Date: 20240528
  Transmission Date: 20240715
  Serious: Yes (Hospitalization)
  Sender: FDA-Public Use
  Company Number: US-002147023-NVSC2023US149242

PATIENT
  Sex: Female

DRUGS (2)
  1. MEKINIST [Suspect]
     Active Substance: TRAMETINIB DIMETHYL SULFOXIDE
     Indication: Malignant connective tissue neoplasm
     Dosage: 1 MG, QD
     Route: 048
     Dates: start: 202306
  2. MEKINIST [Suspect]
     Active Substance: TRAMETINIB DIMETHYL SULFOXIDE
     Indication: Soft tissue sarcoma
     Dosage: 0.5 MG, QD, BY MOUTH
     Route: 048
     Dates: start: 202306

REACTIONS (6)
  - Acne [Recovered/Resolved]
  - Skin haemorrhage [Unknown]
  - Pain of skin [Unknown]
  - Rash [Unknown]
  - Scab [Unknown]
  - Product use in unapproved indication [Unknown]
